FAERS Safety Report 8423027-1 (Version None)
Quarter: 2012Q2

REPORT INFORMATION
  Report Type: 
  Country: None (occurrence: None)
  Receive Date: 20120608
  Receipt Date: 20120531
  Transmission Date: 20120825
  Serious: Yes (Hospitalization, Other)
  Sender: FDA-Public Use
  Company Number: PHHO2010IT19407

PATIENT
  Sex: Male
  Weight: 72 kg

DRUGS (7)
  1. NEORAL [Suspect]
     Indication: RENAL TRANSPLANT
     Dosage: 75 MG, QD
     Route: 048
     Dates: start: 20091214
  2. CALCITRIOL [Concomitant]
     Dosage: UNK
     Dates: start: 20091221
  3. CERTICAN [Concomitant]
     Indication: RENAL TRANSPLANT
     Dosage: 0.5 MG, BID
     Route: 048
     Dates: start: 20091214
  4. MAG 2 [Concomitant]
     Dosage: UNK
     Route: 048
     Dates: start: 20091216
  5. PREDNISONE TAB [Concomitant]
     Indication: IMMUNOSUPPRESSION
     Dosage: 5 MG, QD
     Route: 048
     Dates: start: 20100629
  6. POTASSIUM CHLORIDE [Concomitant]
     Indication: HYPOKALAEMIA
     Dosage: UNK
     Dates: start: 20091216
  7. RANITIDINE HCL [Concomitant]
     Indication: PROPHYLAXIS
     Dosage: UNK
     Dates: start: 20100120

REACTIONS (2)
  - POST TRANSPLANT LYMPHOPROLIFERATIVE DISORDER [None]
  - MONOCLONAL GAMMOPATHY [None]
